FAERS Safety Report 24842133 (Version 1)
Quarter: 2025Q1

REPORT INFORMATION
  Report Type: Spontaneous
  Country: US (occurrence: US)
  Receive Date: 20250115
  Receipt Date: 20250115
  Transmission Date: 20250409
  Serious: Yes (Death, Hospitalization)
  Sender: STRIDES
  Company Number: US-STRIDES ARCOLAB LIMITED-2025SP000474

PATIENT
  Age: 62 Year
  Sex: Male

DRUGS (5)
  1. URSODIOL [Suspect]
     Active Substance: URSODIOL
     Indication: Venoocclusive liver disease
     Route: 065
  2. URSODIOL [Suspect]
     Active Substance: URSODIOL
     Indication: Venoocclusive disease
  3. DEFIBROTIDE [Suspect]
     Active Substance: DEFIBROTIDE (BOVINE)
     Indication: Venoocclusive liver disease
     Route: 065
  4. DEFIBROTIDE [Suspect]
     Active Substance: DEFIBROTIDE (BOVINE)
     Indication: Venoocclusive disease
  5. MELPHALAN [Concomitant]
     Active Substance: MELPHALAN
     Indication: Bone marrow conditioning regimen
     Route: 065

REACTIONS (6)
  - Multiple organ dysfunction syndrome [Fatal]
  - Drug ineffective for unapproved indication [Fatal]
  - Septic shock [Unknown]
  - Cryptococcal fungaemia [Unknown]
  - Encephalopathy [Unknown]
  - Gastrointestinal haemorrhage [Unknown]
